FAERS Safety Report 6190019-5 (Version None)
Quarter: 2009Q2

REPORT INFORMATION
  Report Type: 
  Country: None (occurrence: None)
  Receive Date: 20090512
  Receipt Date: 20090512
  Transmission Date: 20091009
  Serious: Yes (Other)
  Sender: FDA-Public Use
  Company Number: None

PATIENT
  Sex: Male
  Weight: 14.9687 kg

DRUGS (2)
  1. SINGULAIR [Suspect]
     Indication: MULTIPLE ALLERGIES
     Dosage: 4 MG DAILY PO
     Route: 048
     Dates: start: 20090428, end: 20090429
  2. SINGULAIR [Suspect]
     Indication: NASAL DISORDER
     Dosage: 4 MG DAILY PO
     Route: 048
     Dates: start: 20090428, end: 20090429

REACTIONS (3)
  - ABNORMAL BEHAVIOUR [None]
  - AGGRESSION [None]
  - AGITATION [None]
